FAERS Safety Report 14562164 (Version 1)
Quarter: 2018Q1

REPORT INFORMATION
  Report Type: Spontaneous
  Country: US (occurrence: US)
  Receive Date: 20180221
  Receipt Date: 20180221
  Transmission Date: 20180509
  Serious: No
  Sender: FDA-Public Use
  Company Number: None

PATIENT
  Sex: Female
  Weight: 67.5 kg

DRUGS (6)
  1. FISH OIL [Concomitant]
     Active Substance: FISH OIL
  2. GILENYA [Suspect]
     Active Substance: FINGOLIMOD HYDROCHLORIDE
     Indication: PROGRESSIVE RELAPSING MULTIPLE SCLEROSIS
     Dates: start: 20140401, end: 20140831
  3. VITAMIN D [Concomitant]
     Active Substance: CHOLECALCIFEROL
  4. CALCIUM [Concomitant]
     Active Substance: CALCIUM
  5. VIT B [Concomitant]
     Active Substance: VITAMIN B
  6. MULTI [Concomitant]

REACTIONS (4)
  - Sinusitis [None]
  - Hypersensitivity [None]
  - Respiratory tract infection [None]
  - Rash [None]

NARRATIVE: CASE EVENT DATE: 20140801
